FAERS Safety Report 17596797 (Version 2)
Quarter: 2020Q2

REPORT INFORMATION
  Report Type: Spontaneous
  Country: MX (occurrence: MX)
  Receive Date: 20200330
  Receipt Date: 20200407
  Transmission Date: 20200713
  Serious: Yes (Death, Life-Threatening, Hospitalization, Other)
  Sender: FDA-Public Use
  Company Number: MX-JNJFOC-20200330077

PATIENT
  Age: 37 Year
  Sex: Female

DRUGS (7)
  1. PARACETAMOL [Suspect]
     Active Substance: ACETAMINOPHEN
     Dosage: DRUG START PERIOD 1 (MONTHS)
     Route: 065
  2. PARACETAMOL [Suspect]
     Active Substance: ACETAMINOPHEN
     Dosage: DRUG START PERIOD 1 (MONTHS)
     Route: 065
  3. CIPROFLOXACIN. [Concomitant]
     Active Substance: CIPROFLOXACIN
     Indication: PYREXIA
     Route: 065
  4. PARACETAMOL [Suspect]
     Active Substance: ACETAMINOPHEN
     Indication: PYREXIA
     Dosage: 3-4 GRAMS PER DAY
     Route: 048
  5. CLARITHROMYCIN. [Concomitant]
     Active Substance: CLARITHROMYCIN
     Indication: PYREXIA
     Route: 065
  6. RANITIDINE. [Concomitant]
     Active Substance: RANITIDINE
     Indication: PYREXIA
     Route: 065
  7. DEXAMETHASONE. [Concomitant]
     Active Substance: DEXAMETHASONE
     Indication: PYREXIA
     Route: 065

REACTIONS (20)
  - Cystitis [Fatal]
  - Hepatic encephalopathy [Fatal]
  - Multiple organ dysfunction syndrome [Fatal]
  - Metabolic acidosis [Fatal]
  - Hypoglycaemia [Fatal]
  - Pulmonary oedema [Fatal]
  - Hypochromic anaemia [Fatal]
  - Hepatic necrosis [Fatal]
  - Spleen congestion [Fatal]
  - Hypoprothrombinaemia [Fatal]
  - Cerebral congestion [Fatal]
  - Hypokalaemia [Fatal]
  - Laryngitis [Fatal]
  - Hyperplasia [Fatal]
  - Drug ineffective [Fatal]
  - Acute hepatic failure [Fatal]
  - Brain oedema [Fatal]
  - Pulmonary congestion [Fatal]
  - Drug-induced liver injury [Fatal]
  - Renal tubular necrosis [Fatal]
